FAERS Safety Report 8996323 (Version 1)
Quarter: 2013Q1

REPORT INFORMATION
  Report Type: Report from Study
  Country: JP (occurrence: JP)
  Receive Date: 20130104
  Receipt Date: 20130104
  Transmission Date: 20140127
  Serious: Yes (Hospitalization)
  Sender: FDA-Public Use
  Company Number: JP-009507513-1301JPN000471

PATIENT
  Age: 61 Year
  Sex: Female

DRUGS (6)
  1. TEMOZOLOMIDE [Suspect]
     Indication: BRAIN NEOPLASM MALIGNANT
     Dosage: 75 MG/M2, QD
     Route: 048
     Dates: start: 20100712
  2. TEMOZOLOMIDE [Suspect]
     Dosage: 300 MG X 5 DAYS
     Route: 048
     Dates: start: 20111116
  3. BEVACIZUMAB [Suspect]
     Indication: BRAIN NEOPLASM MALIGNANT
     Dosage: UNK UNK, D1, Q2W
     Route: 042
     Dates: start: 20100712
  4. AMLODIPINE BESYLATE [Concomitant]
     Dosage: 5 MG, UNK
     Dates: start: 2001
  5. GLIMEPRID [Concomitant]
     Dosage: 1 MG, UNK
     Dates: start: 2003
  6. BROTIZOLAM [Concomitant]
     Dosage: 0.2 MG, UNK
     Dates: start: 20100622

REACTIONS (1)
  - Cerebral haemorrhage [Not Recovered/Not Resolved]
